FAERS Safety Report 20222759 (Version 1)
Quarter: 2021Q4

REPORT INFORMATION
  Report Type: Spontaneous
  Country: DE (occurrence: DE)
  Receive Date: 20211223
  Receipt Date: 20211223
  Transmission Date: 20220303
  Serious: Yes (Life-Threatening, Other)
  Sender: FDA-Public Use
  Company Number: DE-PFIZER INC-202101786159

PATIENT
  Age: 37 Year
  Sex: Male

DRUGS (1)
  1. DOXEPIN HCL [Suspect]
     Active Substance: DOXEPIN HYDROCHLORIDE
     Dosage: UNK

REACTIONS (5)
  - Intentional overdose [Unknown]
  - Cardiac arrest [Recovered/Resolved]
  - Coma [Recovered/Resolved]
  - Generalised tonic-clonic seizure [Recovered/Resolved]
  - Suicide attempt [Unknown]
